FAERS Safety Report 7137648-X (Version None)
Quarter: 2010Q4

REPORT INFORMATION
  Report Type: 
  Country: None (occurrence: None)
  Receive Date: 20101103
  Receipt Date: 20100609
  Transmission Date: 20110411
  Serious: Yes (Other)
  Sender: FDA-Public Use
  Company Number: 2010S1000408

PATIENT
  Age: 75 Year
  Sex: Female
  Weight: 71 kg

DRUGS (2)
  1. CUBICIN [Suspect]
     Indication: ENDOCARDITIS
     Dosage: 8 MG/KG;Q24H;IV
     Route: 042
     Dates: start: 20100430, end: 20100511
  2. CUBICIN [Suspect]
     Indication: STAPHYLOCOCCAL BACTERAEMIA
     Dosage: 8 MG/KG;Q24H;IV
     Route: 042
     Dates: start: 20100430, end: 20100511

REACTIONS (3)
  - BLOOD CREATINE PHOSPHOKINASE INCREASED [None]
  - MYOPATHY [None]
  - RASH [None]
